FAERS Safety Report 5622257-1 (Version None)
Quarter: 2008Q1

REPORT INFORMATION
  Report Type: 
  Country: None (occurrence: None)
  Receive Date: 20080211
  Receipt Date: 20080131
  Transmission Date: 20080703
  Serious: Yes (Hospitalization)
  Sender: FDA-Public Use
  Company Number: GB-ROCHE-545050

PATIENT
  Age: 72 Year
  Sex: Female
  Weight: 120.7 kg

DRUGS (2)
  1. ORLISTAT [Suspect]
     Indication: OBESITY
     Route: 048
     Dates: start: 20071018, end: 20071223
  2. 1 CONCOMITANT DRUG [Concomitant]
     Indication: PAIN
     Dosage: DRUG NAME COCDAMOL DOSAGE AS REQUIRED
     Route: 048

REACTIONS (1)
  - FALL [None]
